FAERS Safety Report 21285769 (Version 1)
Quarter: 2022Q3

REPORT INFORMATION
  Report Type: Spontaneous
  Country: US (occurrence: US)
  Receive Date: 20220902
  Receipt Date: 20220902
  Transmission Date: 20221027
  Serious: No
  Sender: FDA-Public Use
  Company Number: US-ORGANON-O2208USA000835

PATIENT
  Age: 62 Year
  Sex: Male

DRUGS (4)
  1. PREGNYL [Suspect]
     Active Substance: CHORIOGONADOTROPIN ALFA
     Dosage: 0.25 MILLILITER, 3 TIMES A WEEK
  2. PREGNYL [Suspect]
     Active Substance: CHORIOGONADOTROPIN ALFA
     Dosage: 0.25 MILLILITER, 3 TIMES A WEEK
     Dates: start: 20220805
  3. PREGNYL [Suspect]
     Active Substance: CHORIOGONADOTROPIN ALFA
     Dosage: 0.25 MILLILITER, 3 TIMES A WEEK
  4. STERILE WATER [Suspect]
     Active Substance: WATER
     Dosage: UNK

REACTIONS (9)
  - Product contamination [Unknown]
  - Poor quality product administered [Unknown]
  - Incorrect dose administered [Unknown]
  - Circumstance or information capable of leading to medication error [Unknown]
  - No adverse event [Unknown]
  - Product packaging quantity issue [Unknown]
  - Product contamination [Unknown]
  - Manufacturing product shipping issue [Unknown]
  - Product container issue [Unknown]

NARRATIVE: CASE EVENT DATE: 20220805
